FAERS Safety Report 24710028 (Version 2)
Quarter: 2025Q3

REPORT INFORMATION
  Report Type: Spontaneous
  Country: US (occurrence: US)
  Receive Date: 20241209
  Receipt Date: 20250810
  Transmission Date: 20251021
  Serious: No
  Sender: ALEXION PHARMACEUTICALS
  Company Number: US-AstraZeneca-CH-00760702AP

PATIENT
  Sex: Female

DRUGS (1)
  1. BYDUREON BCISE [Suspect]
     Active Substance: EXENATIDE
     Indication: Diabetes mellitus
     Dosage: 2 MILLIGRAM, QW
     Dates: start: 2024

REACTIONS (6)
  - Injection site bruising [Unknown]
  - Injection site mass [Unknown]
  - Glycosylated haemoglobin increased [Unknown]
  - Weight normal [Unknown]
  - Wrong technique in device usage process [Unknown]
  - Device malfunction [Unknown]
